FAERS Safety Report 4791117-0 (Version None)
Quarter: 2005Q4

REPORT INFORMATION
  Report Type: 
  Country: None (occurrence: None)
  Receive Date: 20051007
  Receipt Date: 20050420
  Transmission Date: 20060501
  Serious: Yes (Hospitalization)
  Sender: FDA-Public Use
  Company Number: ES-BRISTOL-MYERS SQUIBB COMPANY-12969978

PATIENT
  Age: 67 Year
  Sex: Male

DRUGS (3)
  1. MAXIPIME [Suspect]
     Indication: PNEUMONIA
     Route: 042
     Dates: start: 20050407, end: 20050419
  2. PRIMPERAN INJ [Concomitant]
     Indication: VOMITING
     Route: 042
     Dates: start: 20050405
  3. ACETAMINOPHEN [Concomitant]
     Indication: PYREXIA
     Route: 042
     Dates: start: 20050405, end: 20050408

REACTIONS (2)
  - ANAEMIA [None]
  - COOMBS TEST POSITIVE [None]
